FAERS Safety Report 6126845-8 (Version None)
Quarter: 2009Q1

REPORT INFORMATION
  Report Type: 
  Country: None (occurrence: None)
  Receive Date: 20090317
  Receipt Date: 20090309
  Transmission Date: 20090719
  Serious: Yes (Hospitalization)
  Sender: FDA-Public Use
  Company Number: CHNY2009FR01224

PATIENT
  Age: 44 Year
  Sex: Male

DRUGS (10)
  1. HYOSCINE HBR HYT [Suspect]
     Dosage: 1 MG, QD, TRANSDERMAL
     Route: 062
     Dates: end: 20090226
  2. MODITEN (FLUPHENAZINE HYDROHCLORIDE) [Suspect]
     Indication: MENTAL DISORDER
     Dosage: 100 MG, TID, ORAL
     Route: 048
  3. ATARAX [Suspect]
     Indication: MENTAL DISORDER
     Dosage: 100 MG, TID, ORAL
     Route: 048
  4. LEPTICUR (TROPATEPINE HYDROCHLORIDE) [Suspect]
     Indication: MENTAL DISORDER
     Dosage: 10 MG, BID, ORAL
     Route: 048
  5. LOXAPINE SUCCINATE [Suspect]
     Indication: MENTAL DISORDER
     Dosage: 100 MG, TID, ORAL
     Route: 048
  6. NOZINAN /NET/ (LEVOMEPROMAZINE) [Suspect]
     Indication: MENTAL DISORDER
     Dosage: 100 MG, TID, ORAL
     Route: 048
  7. HEPT-A-MYL (HEPTAMINOL HYDROCHLORIDE) [Concomitant]
  8. ANDROCUR (CYPROTERONE ACETATE) [Concomitant]
  9. FORLAX (MACROGOL) [Concomitant]
  10. DEPAKENE [Concomitant]

REACTIONS (6)
  - CONSTIPATION [None]
  - FLATULENCE [None]
  - HAEMATOCRIT DECREASED [None]
  - HAEMOGLOBIN DECREASED [None]
  - PLATELET COUNT DECREASED [None]
  - SERUM FERRITIN INCREASED [None]
